FAERS Safety Report 12352816 (Version 4)
Quarter: 2017Q2

REPORT INFORMATION
  Report Type: Spontaneous
  Country: US (occurrence: US)
  Receive Date: 20160510
  Receipt Date: 20170616
  Transmission Date: 20170830
  Serious: Yes (Other)
  Sender: FDA-Public Use
  Company Number: US-BAYER-2016-085232

PATIENT
  Age: 61 Year
  Sex: Female

DRUGS (4)
  1. LYRICA [Suspect]
     Active Substance: PREGABALIN
  2. PROPOFOL. [Suspect]
     Active Substance: PROPOFOL
  3. CLIMARA [Suspect]
     Active Substance: ESTRADIOL
     Indication: HORMONE REPLACEMENT THERAPY
     Dosage: UNK
     Route: 062
     Dates: start: 1998, end: 1999
  4. CLIMARA [Suspect]
     Active Substance: ESTRADIOL
     Indication: HORMONE REPLACEMENT THERAPY
     Dosage: UNK
     Dates: start: 199905, end: 2001

REACTIONS (26)
  - Sphincter of Oddi dysfunction [None]
  - Dysphagia [None]
  - Adverse drug reaction [None]
  - Gastrointestinal disorder [None]
  - Insomnia [None]
  - Thyroid function test abnormal [None]
  - Post procedural haemorrhage [None]
  - Anxiety [None]
  - Alopecia [None]
  - Feeling abnormal [None]
  - Asthma [None]
  - Agitation [None]
  - Blood glucose abnormal [None]
  - Immunodeficiency [None]
  - Swollen tongue [None]
  - Mood altered [None]
  - Anaphylactic shock [Recovered/Resolved]
  - Postoperative wound infection [None]
  - Middle insomnia [None]
  - Panic attack [None]
  - Substance-induced psychotic disorder [None]
  - Hypersensitivity [None]
  - Cholecystitis [None]
  - Adrenal insufficiency [None]
  - Urticaria [None]
  - Abnormal loss of weight [None]

NARRATIVE: CASE EVENT DATE: 1999
